FAERS Safety Report 13452309 (Version 9)
Quarter: 2018Q1

REPORT INFORMATION
  Report Type: Spontaneous
  Country: US (occurrence: US)
  Receive Date: 20170418
  Receipt Date: 20180115
  Transmission Date: 20180508
  Serious: Yes (Congenital Anomaly, Other)
  Sender: FDA-Public Use
  Company Number: PHEH2017US011204

PATIENT
  Sex: Male

DRUGS (2)
  1. ZOFRAN [Suspect]
     Active Substance: ONDANSETRON HYDROCHLORIDE
     Indication: FOETAL EXPOSURE DURING PREGNANCY
     Dosage: MOTHER DOSE FREQUENCY: Q6H
     Route: 064
  2. ZOFRAN ODT [Suspect]
     Active Substance: ONDANSETRON HYDROCHLORIDE
     Indication: FOETAL EXPOSURE DURING PREGNANCY
     Dosage: MOTHER DOSE FREQUENCY: QD
     Route: 064

REACTIONS (31)
  - Congenital aortic dilatation [Unknown]
  - Connective tissue disorder [Unknown]
  - Headache [Unknown]
  - Pyrexia [Unknown]
  - Myalgia [Unknown]
  - Conjunctivitis [Unknown]
  - Atypical pneumonia [Unknown]
  - Arthralgia [Unknown]
  - Sepsis neonatal [Unknown]
  - Premature baby [Unknown]
  - Insomnia [Unknown]
  - Bicuspid aortic valve [Unknown]
  - Oral candidiasis [Unknown]
  - Otitis media [Unknown]
  - Appendicitis [Unknown]
  - Decreased activity [Unknown]
  - Tonsillitis [Unknown]
  - Concussion [Unknown]
  - Skin lesion [Unknown]
  - Congenital aortic valve incompetence [Unknown]
  - Neonatal respiratory distress [Unknown]
  - Foetal exposure during pregnancy [Unknown]
  - Pharyngitis [Unknown]
  - Abdominal pain [Unknown]
  - Hyperbilirubinaemia neonatal [Unknown]
  - Upper respiratory tract infection [Unknown]
  - Cough [Unknown]
  - Head injury [Unknown]
  - Palpitations [Unknown]
  - Chest pain [Unknown]
  - Fatigue [Unknown]

NARRATIVE: CASE EVENT DATE: 20040728
